FAERS Safety Report 4785456-7 (Version None)
Quarter: 2005Q3

REPORT INFORMATION
  Report Type: 
  Country: None (occurrence: None)
  Receive Date: 20050929
  Receipt Date: 20050915
  Transmission Date: 20060218
  Serious: Yes (Other)
  Sender: FDA-Public Use
  Company Number: T05-CAN-03488-01

PATIENT
  Age: 56 Year
  Sex: Male

DRUGS (3)
  1. CELEXA [Suspect]
     Indication: DEPRESSION
     Dates: end: 20050808
  2. METHOTREXATE [Suspect]
     Dates: end: 20050808
  3. CARBAMAZEPINE [Suspect]
     Dates: end: 20050808

REACTIONS (10)
  - ALANINE AMINOTRANSFERASE INCREASED [None]
  - ANOREXIA [None]
  - ASPARTATE AMINOTRANSFERASE INCREASED [None]
  - BLOOD ALKALINE PHOSPHATASE INCREASED [None]
  - CHILLS [None]
  - CONSTIPATION [None]
  - GAMMA-GLUTAMYLTRANSFERASE INCREASED [None]
  - MALAISE [None]
  - PYREXIA [None]
  - URINARY TRACT INFECTION [None]
